FAERS Safety Report 22526267 (Version 1)
Quarter: 2023Q2

REPORT INFORMATION
  Report Type: Spontaneous
  Country: HR (occurrence: HR)
  Receive Date: 20230606
  Receipt Date: 20230606
  Transmission Date: 20230721
  Serious: Yes (Other)
  Sender: FDA-Public Use
  Company Number: None

PATIENT
  Age: 42 Year
  Sex: Female
  Weight: 81 kg

DRUGS (2)
  1. EUTHYROX [Suspect]
     Active Substance: LEVOTHYROXINE SODIUM
     Indication: Hypothyroidism
     Dosage: ADR WAS NOT ADEQUATELY LABELLED: EDEMA OF EXTREMITIES, LYMPH NODE PAIN.
     Route: 048
     Dates: start: 20230115, end: 20230301
  2. EUTHYROX [Suspect]
     Active Substance: LEVOTHYROXINE SODIUM
     Indication: Thyroidectomy

REACTIONS (9)
  - Hypothyroidism [Not Recovered/Not Resolved]
  - Lymph node pain [Not Recovered/Not Resolved]
  - Lymphadenopathy [Not Recovered/Not Resolved]
  - Chest discomfort [Recovering/Resolving]
  - Palpitations [Not Recovered/Not Resolved]
  - Depressed mood [Recovering/Resolving]
  - Anxiety [Recovering/Resolving]
  - Mood swings [Recovering/Resolving]
  - Oedema peripheral [Not Recovered/Not Resolved]

NARRATIVE: CASE EVENT DATE: 20230121
